FAERS Safety Report 7550420-1 (Version None)
Quarter: 2011Q2

REPORT INFORMATION
  Report Type: 
  Country: None (occurrence: None)
  Receive Date: 20110615
  Receipt Date: 20110613
  Transmission Date: 20111010
  Serious: Yes (Hospitalization)
  Sender: FDA-Public Use
  Company Number: JP-ABBOTT-11P-087-0731995-00

PATIENT
  Sex: Male

DRUGS (4)
  1. HUMIRA [Suspect]
     Dates: end: 20110514
  2. HUMIRA [Suspect]
     Indication: CROHN'S DISEASE
     Route: 058
     Dates: start: 20110305, end: 20110305
  3. MESALAMINE [Concomitant]
     Indication: CROHN'S DISEASE
     Route: 048
  4. HUMIRA [Suspect]

REACTIONS (3)
  - TONSILLITIS [None]
  - PYREXIA [None]
  - MELAENA [None]
